FAERS Safety Report 4664820-0 (Version None)
Quarter: 2005Q2

REPORT INFORMATION
  Report Type: 
  Country: None (occurrence: None)
  Receive Date: 20050516
  Receipt Date: 20050428
  Transmission Date: 20051028
  Serious: Yes (Hospitalization)
  Sender: FDA-Public Use
  Company Number: DEU-2005-0001397

PATIENT
  Age: 86 Year
  Sex: Female
  Weight: 58 kg

DRUGS (7)
  1. OXY CR [Suspect]
     Indication: PAIN
     Dosage: 20 MG, BID, ORAL;   40 MG, BID
     Route: 048
     Dates: start: 20041012, end: 20041017
  2. OXY CR [Suspect]
     Indication: PAIN
     Dosage: 20 MG, BID, ORAL;   40 MG, BID
     Route: 048
     Dates: start: 20041018
  3. MORPHINE SULFATE [Concomitant]
  4. DIPYRONE TAB [Concomitant]
  5. LACTUFLOR                          (LACTULOSE) [Concomitant]
  6. LAXOBERAL                        (SODIUM PICOSULFATE) [Concomitant]
  7. GASTROSIL                              (METOCLOPRAMIDE HYDROCHLORIDE) [Concomitant]

REACTIONS (5)
  - DECUBITUS ULCER [None]
  - FALL [None]
  - HUMERUS FRACTURE [None]
  - SKIN LACERATION [None]
  - WOUND [None]
